FAERS Safety Report 7274832-9 (Version None)
Quarter: 2011Q1

REPORT INFORMATION
  Report Type: 
  Country: None (occurrence: None)
  Receive Date: 20110204
  Receipt Date: 20101227
  Transmission Date: 20110831
  Serious: Yes (Other)
  Sender: FDA-Public Use
  Company Number: US-PFIZER INC-2010180088

PATIENT
  Age: 20 Year
  Sex: Female
  Weight: 60 kg

DRUGS (9)
  1. DOXORUBICIN HCL [Suspect]
  2. DACARBAZINE [Suspect]
  3. FENTANYL [Suspect]
     Indication: ANALGESIC THERAPY
  4. PROPOFOL [Suspect]
     Indication: SEDATION
     Dosage: 2.4 MG/KG/H
  5. VINCRISTINE [Suspect]
  6. CYCLOPHOSPHAMIDE [Suspect]
  7. VINBLASTINE [Suspect]
  8. FENTANYL [Suspect]
     Indication: SEDATION
     Dosage: 25 MCG/H
     Route: 050
  9. PROPOFOL [Suspect]
     Indication: ANALGESIC THERAPY

REACTIONS (3)
  - FOETAL GROWTH RESTRICTION [None]
  - FOETAL DISORDER [None]
  - OLIGOHYDRAMNIOS [None]
